FAERS Safety Report 7935620-0 (Version None)
Quarter: 2011Q4

REPORT INFORMATION
  Report Type: 
  Country: None (occurrence: None)
  Receive Date: 20111123
  Receipt Date: 20111111
  Transmission Date: 20120403
  Serious: Yes (Other)
  Sender: FDA-Public Use
  Company Number: US-ELI_LILLY_AND_COMPANY-US201111004666

PATIENT
  Age: 45 Year
  Sex: Female

DRUGS (1)
  1. CYMBALTA [Suspect]
     Indication: ANXIETY
     Dosage: 60 MG, QD
     Dates: start: 20090101, end: 20111108

REACTIONS (15)
  - FIBROMYALGIA [None]
  - DYSSTASIA [None]
  - MEMORY IMPAIRMENT [None]
  - DRUG EFFECT DECREASED [None]
  - BLOOD PRESSURE FLUCTUATION [None]
  - SPINAL COLUMN STENOSIS [None]
  - GAIT DISTURBANCE [None]
  - TINNITUS [None]
  - DRUG WITHDRAWAL SYNDROME [None]
  - HYPOKINESIA [None]
  - IMPAIRED DRIVING ABILITY [None]
  - CONFUSIONAL STATE [None]
  - ERYTHEMA [None]
  - DIZZINESS [None]
  - CRYING [None]
